FAERS Safety Report 13659700 (Version 1)
Quarter: 2017Q2

REPORT INFORMATION
  Report Type: Spontaneous
  Country: US (occurrence: US)
  Receive Date: 20170616
  Receipt Date: 20170616
  Transmission Date: 20170830
  Serious: No
  Sender: FDA-Public Use
  Company Number: US-GLAXOSMITHKLINE-US2017092258

PATIENT
  Age: 45 Year
  Sex: Male

DRUGS (1)
  1. BREO ELLIPTA [Suspect]
     Active Substance: FLUTICASONE FUROATE\VILANTEROL TRIFENATATE
     Indication: WHEEZING
     Dosage: 2 PUFF(S), BID
     Route: 055
     Dates: start: 20170613

REACTIONS (2)
  - Overdose [Unknown]
  - Drug dispensing error [Unknown]

NARRATIVE: CASE EVENT DATE: 20170613
